FAERS Safety Report 9752033 (Version 1)
Quarter: 2013Q4

REPORT INFORMATION
  Report Type: Spontaneous
  Country: IT (occurrence: None)
  Receive Date: 20131211
  Receipt Date: 20131211
  Transmission Date: 20140711
  Serious: Yes (Other)
  Sender: FDA-Public Use
  Company Number: AUR-APL-2013-10300

PATIENT
  Age: 76 Year
  Sex: Male

DRUGS (4)
  1. CITALOPRAM (CITALOPRAM) [Suspect]
     Indication: DEPRESSION
     Dosage: 20 MG, 1 IN 1 D
     Route: 048
  2. SINEMET [Suspect]
     Route: 048
  3. REQUIP [Concomitant]
  4. LANSOPRAZOLE [Concomitant]

REACTIONS (2)
  - Erythema [None]
  - Pruritus [None]
